FAERS Safety Report 8913954 (Version 1)
Quarter: 2012Q4

REPORT INFORMATION
  Report Type: 
  Country: US (occurrence: US)
  Receive Date: 20121119
  Receipt Date: 20121119
  Transmission Date: 20130627
  Serious: Yes (Hospitalization)
  Sender: FDA-Public Use
  Company Number: US-ROXANE LABORATORIES, INC.-2012-RO-02370RO

PATIENT
  Age: 63 Year
  Sex: Female

DRUGS (11)
  1. FLUTICASONE [Suspect]
  2. SAXAGLIPTIN [Suspect]
     Indication: TYPE 2 DIABETES MELLITUS
     Dates: start: 20110621, end: 20120711
  3. METFORMIN HCL [Suspect]
     Indication: TYPE 2 DIABETES MELLITUS
     Dosage: 1500 mg
  4. NOVOLIN [Suspect]
     Indication: TYPE 2 DIABETES MELLITUS
     Dosage: 80 U
  5. NOVOLIN [Suspect]
     Dosage: 90 U
     Dates: start: 20120201
  6. GLYBURIDE [Suspect]
     Indication: TYPE 2 DIABETES MELLITUS
     Dosage: 2.5 mg
     Dates: start: 20111022
  7. PLACEBO [Suspect]
     Indication: TYPE 2 DIABETES MELLITUS
     Dates: start: 20110621, end: 20120711
  8. ASPIRIN [Concomitant]
  9. ANGIOTENSIN RECEPTOR BLOCKER [Concomitant]
  10. STATIN [Concomitant]
  11. BETA BLOCKER [Concomitant]

REACTIONS (2)
  - Pancreatitis [Unknown]
  - Pancytopenia [Recovered/Resolved]
